FAERS Safety Report 5938176-7 (Version None)
Quarter: 2008Q4

REPORT INFORMATION
  Report Type: 
  Country: None (occurrence: None)
  Receive Date: 20081031
  Receipt Date: 20081029
  Transmission Date: 20090506
  Serious: Yes (Hospitalization)
  Sender: FDA-Public Use
  Company Number: JP-B.I. PHARMACEUTICALS,INC./RIDGEFIELD-2008-BP-15716NB

PATIENT
  Age: 75 Year
  Sex: Male

DRUGS (2)
  1. MICARDIS [Suspect]
     Dosage: 80MG
     Route: 048
     Dates: start: 20080410
  2. BETA-BLOCKER [Suspect]

REACTIONS (2)
  - HYPOGLYCAEMIA [None]
  - SINUS BRADYCARDIA [None]
